FAERS Safety Report 5054415-1 (Version None)
Quarter: 2006Q3

REPORT INFORMATION
  Report Type: 
  Country: None (occurrence: None)
  Receive Date: 20060713
  Receipt Date: 20060630
  Transmission Date: 20061208
  Serious: Yes (Hospitalization, Disabling, Other)
  Sender: FDA-Public Use
  Company Number: DEU-2006-0002314

PATIENT
  Age: 71 Year
  Sex: Male

DRUGS (1)
  1. HYDROMORPHONE HCL [Suspect]
     Indication: BACK PAIN
     Dosage: 110 MG, DAILY, INTRATHECAL
     Route: 039

REACTIONS (9)
  - ANAL SPHINCTER ATONY [None]
  - ARACHNOIDITIS [None]
  - CATHETER RELATED COMPLICATION [None]
  - FAECAL INCONTINENCE [None]
  - GRANULOMA [None]
  - INJECTION SITE ANAESTHESIA [None]
  - INJECTION SITE MASS [None]
  - NERVOUS SYSTEM DISORDER [None]
  - URINARY INCONTINENCE [None]
